FAERS Safety Report 22259735 (Version 1)
Quarter: 2023Q2

REPORT INFORMATION
  Report Type: Spontaneous
  Country: US (occurrence: US)
  Receive Date: 20230427
  Receipt Date: 20230427
  Transmission Date: 20230722
  Serious: Yes (Other)
  Sender: FDA-Public Use
  Company Number: US-MYLANLABS-2023M1044290

PATIENT
  Age: 69 Year
  Sex: Male

DRUGS (6)
  1. IFOSFAMIDE [Suspect]
     Active Substance: IFOSFAMIDE
     Indication: Diffuse large B-cell lymphoma
     Dosage: UNK
     Route: 065
  2. CARBOPLATIN [Suspect]
     Active Substance: CARBOPLATIN
     Indication: Diffuse large B-cell lymphoma
     Dosage: UNK
     Route: 065
  3. RITUXIMAB [Concomitant]
     Active Substance: RITUXIMAB
     Indication: Diffuse large B-cell lymphoma
     Dosage: UNK, AS A PART OF DA-EPOCH-R REGIMEN
     Route: 065
  4. RITUXIMAB [Concomitant]
     Active Substance: RITUXIMAB
     Dosage: UNK
     Route: 065
  5. ETOPOSIDE [Concomitant]
     Active Substance: ETOPOSIDE
     Indication: Diffuse large B-cell lymphoma
     Dosage: UNK,AS A PART OF DA-EPOCH-R REGIMEN
     Route: 065
  6. ETOPOSIDE [Concomitant]
     Active Substance: ETOPOSIDE
     Dosage: UNK
     Route: 065

REACTIONS (2)
  - Drug ineffective [Unknown]
  - Disease progression [Unknown]
